FAERS Safety Report 21307349 (Version 1)
Quarter: 2022Q3

REPORT INFORMATION
  Report Type: Spontaneous
  Country: US (occurrence: US)
  Receive Date: 20220908
  Receipt Date: 20220908
  Transmission Date: 20221026
  Serious: Yes (Hospitalization)
  Sender: FDA-Public Use
  Company Number: US-PFIZER INC-PV202200059091

PATIENT
  Age: 63 Year
  Sex: Male

DRUGS (3)
  1. VIAGRA [Interacting]
     Active Substance: SILDENAFIL CITRATE
     Dosage: UNK
     Dates: end: 202208
  2. TYVASO [Interacting]
     Active Substance: TREPROSTINIL
     Indication: Pulmonary arterial hypertension
     Dosage: UNK
     Dates: start: 20220813
  3. TYVASO [Interacting]
     Active Substance: TREPROSTINIL
     Dosage: 18 UG, 4X/DAY
     Dates: start: 202208

REACTIONS (3)
  - Drug interaction [Unknown]
  - Hyperhidrosis [Unknown]
  - Blood pressure decreased [Unknown]
